FAERS Safety Report 5490041-8 (Version None)
Quarter: 2007Q4

REPORT INFORMATION
  Report Type: 
  Country: None (occurrence: None)
  Receive Date: 20071016
  Receipt Date: 20071001
  Transmission Date: 20080405
  Serious: Yes (Hospitalization)
  Sender: FDA-Public Use
  Company Number: DSA_30334_2007

PATIENT
  Sex: Male
  Weight: 78.0187 kg

DRUGS (20)
  1. VASOTEC [Suspect]
     Indication: BLOOD PRESSURE
     Dosage: (2.5 MG BID ORAL), (2.5 MG QD ORAL)
     Dates: start: 20060101, end: 20070621
  2. VASOTEC [Suspect]
     Indication: CARDIAC DISORDER
     Dosage: (2.5 MG BID ORAL), (2.5 MG QD ORAL)
     Dates: start: 20060101, end: 20070621
  3. VASOTEC [Suspect]
     Indication: BLOOD PRESSURE
     Dosage: (2.5 MG BID ORAL), (2.5 MG QD ORAL)
     Dates: start: 20070622, end: 20070712
  4. VASOTEC [Suspect]
     Indication: CARDIAC DISORDER
     Dosage: (2.5 MG BID ORAL), (2.5 MG QD ORAL)
     Dates: start: 20070622, end: 20070712
  5. LISINOPRIL [Suspect]
     Indication: BLOOD PRESSURE
     Dosage: (10 MG QD)
     Dates: start: 20070713, end: 20070716
  6. LISINOPRIL [Suspect]
     Indication: CARDIAC DISORDER
     Dosage: (10 MG QD)
     Dates: start: 20070713, end: 20070716
  7. ALBUTEROL [Concomitant]
  8. SPIRIVA [Concomitant]
  9. FORADIL [Concomitant]
  10. ASMANEX TWISTHALER [Concomitant]
  11. XOPENEX [Concomitant]
  12. FOSAMAX [Concomitant]
  13. MUCINEX [Concomitant]
  14. CALCIUM D [Concomitant]
  15. ENTERIC ASPIRIN [Concomitant]
  16. DOCUSATE SODIUM [Concomitant]
  17. ALPRAZOLAM [Concomitant]
  18. SIMVASTATIN [Concomitant]
  19. SSKI [Concomitant]
  20. BISOPROLOL FUMARATE [Concomitant]

REACTIONS (6)
  - DYSPHAGIA [None]
  - DYSURIA [None]
  - HAEMORRHAGE URINARY TRACT [None]
  - LARYNGITIS [None]
  - LOCAL SWELLING [None]
  - PROSTATIC SPECIFIC ANTIGEN INCREASED [None]
